FAERS Safety Report 4962925-8 (Version None)
Quarter: 2006Q1

REPORT INFORMATION
  Report Type: 
  Country: None (occurrence: None)
  Receive Date: 20060331
  Receipt Date: 20060317
  Transmission Date: 20060701
  Serious: Yes (Death)
  Sender: FDA-Public Use
  Company Number: US200603005091

PATIENT
  Sex: Female

DRUGS (2)
  1. HUMULIN R [Suspect]
     Indication: DIABETES MELLITUS
     Dosage: 3/D
     Dates: start: 19810101, end: 20060306
  2. HUMULIN N [Suspect]
     Indication: DIABETES MELLITUS
     Dosage: 2/D
     Dates: start: 19810101, end: 20060306

REACTIONS (2)
  - CARDIAC ARREST [None]
  - DIABETIC COMPLICATION [None]
